FAERS Safety Report 13545176 (Version 1)
Quarter: 2017Q2

REPORT INFORMATION
  Report Type: Spontaneous
  Country: JP (occurrence: JP)
  Receive Date: 20170515
  Receipt Date: 20170515
  Transmission Date: 20170830
  Serious: Yes (Death)
  Sender: FDA-Public Use
  Company Number: JP-ORPHAN EUROPE-2020742

PATIENT
  Age: 2 Month
  Sex: Female

DRUGS (7)
  1. CARBAGLU [Suspect]
     Active Substance: CARGLUMIC ACID
     Indication: HYPERAMMONAEMIA
     Route: 050
     Dates: start: 20161214, end: 20161228
  2. BUPHENYL [Concomitant]
     Active Substance: SODIUM PHENYLBUTYRATE
  3. MERCAZOLE [Concomitant]
     Active Substance: CARBIMAZOLE
  4. ARGININE [Concomitant]
     Active Substance: ARGININE
  5. CITRULLINE [Concomitant]
     Active Substance: CITRULLINE
  6. L-CARNITINE [Concomitant]
     Active Substance: LEVOCARNITINE
  7. BIOTIN [Concomitant]
     Active Substance: BIOTIN

REACTIONS (2)
  - Hepatic failure [Fatal]
  - Condition aggravated [Fatal]

NARRATIVE: CASE EVENT DATE: 20170103
